FAERS Safety Report 5727278-6 (Version None)
Quarter: 2008Q2

REPORT INFORMATION
  Report Type: 
  Country: None (occurrence: None)
  Receive Date: 20080505
  Receipt Date: 20080422
  Transmission Date: 20081010
  Serious: Yes (Hospitalization)
  Sender: FDA-Public Use
  Company Number: FR-AMGEN-UK275814

PATIENT
  Age: 68 Year
  Sex: Male

DRUGS (3)
  1. KINERET [Suspect]
     Indication: RHEUMATOID ARTHRITIS
     Route: 058
     Dates: start: 20020205
  2. CORTANCYL [Concomitant]
  3. METHOTREXATE [Concomitant]

REACTIONS (1)
  - THROMBOPHLEBITIS [None]
